FAERS Safety Report 8746594 (Version 8)
Quarter: 2017Q1

REPORT INFORMATION
  Report Type: Spontaneous
  Country: US (occurrence: US)
  Receive Date: 20120827
  Receipt Date: 20170113
  Transmission Date: 20170429
  Serious: Yes (Hospitalization, Disabling, Other)
  Sender: FDA-Public Use
  Company Number: US-009507513-1208USA006854

PATIENT
  Sex: Female
  Weight: 81.63 kg

DRUGS (2)
  1. FOSAMAX [Suspect]
     Active Substance: ALENDRONATE SODIUM
     Indication: BONE DENSITY DECREASED
     Dosage: 70 MG, UNKNOWN
     Route: 048
     Dates: start: 2003, end: 2008
  2. FOSAMAX [Suspect]
     Active Substance: ALENDRONATE SODIUM
     Indication: OSTEOPOROSIS

REACTIONS (60)
  - Loss of consciousness [Unknown]
  - Osteopenia [Unknown]
  - Muscle atrophy [Unknown]
  - Myocardial ischaemia [Unknown]
  - Osteonecrosis [Unknown]
  - Femur fracture [Not Recovered/Not Resolved]
  - Femur fracture [Recovered/Resolved]
  - Anaemia of chronic disease [Not Recovered/Not Resolved]
  - Acute kidney injury [Unknown]
  - Low turnover osteopathy [Not Recovered/Not Resolved]
  - Rib fracture [Unknown]
  - Pain [Unknown]
  - Urinary tract infection [Recovered/Resolved]
  - Pain in extremity [Unknown]
  - Coronary angioplasty [Unknown]
  - Insulin-requiring type 2 diabetes mellitus [Unknown]
  - Hypertension [Unknown]
  - Spinal column stenosis [Unknown]
  - Blood glucose decreased [Unknown]
  - Tendon disorder [Unknown]
  - Coronary arterial stent insertion [Unknown]
  - Cataract operation [Unknown]
  - Intramedullary rod insertion [Recovered/Resolved]
  - Tibia fracture [Unknown]
  - Foot fracture [Unknown]
  - Skeletal traction [Unknown]
  - Femur fracture [Recovered/Resolved]
  - Tenosynovitis [Unknown]
  - Arrhythmia [Unknown]
  - Pain in extremity [Unknown]
  - Pancreatitis [Unknown]
  - Haemoglobin decreased [Unknown]
  - Diabetic neuropathy [Unknown]
  - Osteoporosis [Unknown]
  - Procedural vomiting [Unknown]
  - Peripheral arterial occlusive disease [Unknown]
  - Muscle rupture [Unknown]
  - Cough [Unknown]
  - Hyperlipidaemia [Unknown]
  - Lacrimal duct procedure [Unknown]
  - Gastrooesophageal reflux disease [Unknown]
  - Intramedullary rod insertion [Recovered/Resolved]
  - Ankle fracture [Unknown]
  - Open reduction of fracture [Unknown]
  - Osteoarthritis [Unknown]
  - Coronary artery disease [Unknown]
  - Conjunctivitis [Not Recovered/Not Resolved]
  - Wound secretion [Unknown]
  - Dyslipidaemia [Unknown]
  - Vitamin B12 deficiency [Unknown]
  - Tendonitis [Unknown]
  - Peripheral vascular disorder [Unknown]
  - Urinary tract infection bacterial [Unknown]
  - Diarrhoea [Unknown]
  - Femur fracture [Unknown]
  - Osteoarthritis [Unknown]
  - Procedural nausea [Unknown]
  - Pain [Not Recovered/Not Resolved]
  - Aortic stenosis [Unknown]
  - Constipation [Recovered/Resolved]

NARRATIVE: CASE EVENT DATE: 2006
